FAERS Safety Report 5542591-3 (Version None)
Quarter: 2007Q4

REPORT INFORMATION
  Report Type: 
  Country: None (occurrence: None)
  Receive Date: 20071210
  Receipt Date: 20070601
  Transmission Date: 20080405
  Serious: Yes (Other)
  Sender: FDA-Public Use
  Company Number: IL-GENENTECH-252453

PATIENT
  Sex: Female

DRUGS (1)
  1. AVASTIN [Suspect]
     Indication: COLON CANCER

REACTIONS (2)
  - ANAPHYLACTIC SHOCK [None]
  - HYPERSENSITIVITY [None]
